FAERS Safety Report 18043242 (Version 1)
Quarter: 2020Q3

REPORT INFORMATION
  Report Type: Spontaneous
  Country: US (occurrence: US)
  Receive Date: 20200717
  Receipt Date: 20200717
  Transmission Date: 20201103
  Serious: Yes (Hospitalization)
  Sender: FDA-Public Use
  Company Number: None

PATIENT
  Sex: Male

DRUGS (12)
  1. MONTELUKAST [Suspect]
     Active Substance: MONTELUKAST SODIUM
  2. SILDENAFIL 20MG [Suspect]
     Active Substance: SILDENAFIL
     Indication: PULMONARY ARTERIAL HYPERTENSION
     Route: 048
     Dates: start: 20180306
  3. SPIRONOLACT [Suspect]
     Active Substance: SPIRONOLACTONE
  4. DONEPEZIL. [Suspect]
     Active Substance: DONEPEZIL
  5. MEMANTINE. [Suspect]
     Active Substance: MEMANTINE
  6. CANDESARTAN. [Suspect]
     Active Substance: CANDESARTAN
  7. XARELTO [Suspect]
     Active Substance: RIVAROXABAN
  8. ALENDRONATE [Suspect]
     Active Substance: ALENDRONATE SODIUM
  9. CARVEDILOL. [Suspect]
     Active Substance: CARVEDILOL
  10. FUROSEMIDE. [Suspect]
     Active Substance: FUROSEMIDE
  11. WIXELA INHUB [Suspect]
     Active Substance: FLUTICASONE PROPIONATE\SALMETEROL XINAFOATE
  12. CLOPIDOGREL [Suspect]
     Active Substance: CLOPIDOGREL BISULFATE

REACTIONS (3)
  - Therapy interrupted [None]
  - Memory impairment [None]
  - Hospitalisation [None]
